FAERS Safety Report 7707626-8 (Version None)
Quarter: 2011Q3

REPORT INFORMATION
  Report Type: 
  Country: None (occurrence: None)
  Receive Date: 20110824
  Receipt Date: 20110816
  Transmission Date: 20111222
  Serious: Yes (Hospitalization)
  Sender: FDA-Public Use
  Company Number: US-ELI_LILLY_AND_COMPANY-US201106005990

PATIENT
  Sex: Male

DRUGS (4)
  1. NEURONTIN [Concomitant]
     Dosage: 600 MG, BID
  2. RANIDINE [Concomitant]
     Dosage: 150 MG, BID
  3. HUMALOG [Suspect]
     Indication: TYPE 1 DIABETES MELLITUS
     Dosage: UNK
     Route: 058
     Dates: start: 19950101
  4. REGLAN [Concomitant]
     Dosage: UNK, QID
     Route: 048

REACTIONS (1)
  - DIABETIC GASTROPARESIS [None]
